FAERS Safety Report 7215894-4 (Version None)
Quarter: 2011Q1

REPORT INFORMATION
  Report Type: 
  Country: None (occurrence: None)
  Receive Date: 20110107
  Receipt Date: 20101227
  Transmission Date: 20110831
  Serious: Yes (Hospitalization)
  Sender: FDA-Public Use
  Company Number: JP-GENZYME-THYM-1001461

PATIENT
  Sex: Female
  Weight: 49 kg

DRUGS (23)
  1. SULFAMETHOXAZOLE AND TRIMETHOPRIM [Concomitant]
     Indication: ANTIFUNGAL PROPHYLAXIS
     Dosage: UNK
     Dates: start: 20090806
  2. POVIDONE IODINE [Concomitant]
     Indication: PSEUDOMONAL SEPSIS
  3. VALACICLOVIR [Concomitant]
     Indication: ANTIVIRAL PROPHYLAXIS
     Dosage: UNK
     Dates: start: 20090806
  4. ITRACONAZOLE [Concomitant]
     Indication: ANTIFUNGAL PROPHYLAXIS
     Dosage: UNK
     Dates: start: 20090806
  5. CYCLOSPORINE [Concomitant]
     Indication: APLASTIC ANAEMIA
     Dosage: UNK
     Dates: start: 20090810
  6. MAGNESIUM OXIDE [Concomitant]
     Indication: CONSTIPATION
     Dosage: UNK
     Dates: start: 20090825
  7. THYMOGLOBULIN [Suspect]
     Indication: APLASTIC ANAEMIA
     Dosage: 175 MG, QD
     Route: 042
     Dates: start: 20090810, end: 20090814
  8. METHYLPREDNISOLONE SODIUM SUCCINATE [Concomitant]
     Indication: PREMEDICATION
     Dosage: UNK
     Dates: start: 20090810, end: 20090820
  9. POVIDONE IODINE [Concomitant]
     Indication: UPPER RESPIRATORY TRACT INFLAMMATION
  10. ZOLPIDEM TARTRATE [Concomitant]
     Indication: INSOMNIA
     Dosage: UNK
     Dates: start: 20090802
  11. ACETAMINOPHEN [Concomitant]
     Indication: PYREXIA
     Dosage: UNK
     Dates: start: 20090730
  12. CARBOCISTEINE [Concomitant]
     Indication: UPPER RESPIRATORY TRACT INFLAMMATION
     Dosage: UNK
     Dates: start: 20090911, end: 20091026
  13. CARBOCISTEINE [Concomitant]
     Indication: PSEUDOMONAL SEPSIS
  14. CLARITHROMYCIN [Concomitant]
     Indication: UPPER RESPIRATORY TRACT INFLAMMATION
     Dosage: UNK
     Dates: start: 20091013, end: 20091026
  15. CLARITHROMYCIN [Concomitant]
     Indication: PSEUDOMONAL SEPSIS
  16. MICAFUNGIN SODIUM [Concomitant]
     Indication: FUNGAL INFECTION
     Dosage: UNK
     Dates: start: 20090820, end: 20090831
  17. OMEPRAZOLE [Concomitant]
     Indication: HAEMORRHAGE PROPHYLAXIS
     Dosage: UNK
     Dates: start: 20090806
  18. ETIZOLAM [Concomitant]
     Indication: INSOMNIA
     Dosage: UNK
     Dates: start: 20090804
  19. PREDNISOLONE [Concomitant]
     Indication: PREMEDICATION
     Dosage: UNK
     Dates: start: 20090821, end: 20090902
  20. MICAFUNGIN SODIUM [Concomitant]
     Indication: LIVER DISORDER
  21. LEVOFLOXACIN [Concomitant]
     Indication: ANTIBIOTIC PROPHYLAXIS
     Dosage: UNK
     Dates: start: 20091007
  22. POVIDONE IODINE [Concomitant]
     Indication: INFECTION PROPHYLAXIS
     Dosage: UNK
     Dates: start: 20090807
  23. LENOGRASTIM (GENETICAL RECOMBINATION) [Concomitant]
     Indication: APLASTIC ANAEMIA
     Dosage: UNK
     Dates: start: 20090810, end: 20091006

REACTIONS (2)
  - LIVER DISORDER [None]
  - PSEUDOMONAL SEPSIS [None]
